FAERS Safety Report 5524649-8 (Version None)
Quarter: 2007Q4

REPORT INFORMATION
  Report Type: 
  Country: None (occurrence: None)
  Receive Date: 20071123
  Receipt Date: 20071116
  Transmission Date: 20080405
  Serious: Yes (Life-Threatening)
  Sender: FDA-Public Use
  Company Number: ID-SHR-ID-2007-043532

PATIENT
  Age: 23 Year
  Sex: Male
  Weight: 75 kg

DRUGS (1)
  1. MAGNEVIST [Suspect]
     Dosage: 459 MG, 1 DOSE
     Route: 042
     Dates: start: 20071116, end: 20071116

REACTIONS (3)
  - ASPHYXIA [None]
  - CYANOSIS [None]
  - OEDEMA [None]
